FAERS Safety Report 13009070 (Version 6)
Quarter: 2017Q3

REPORT INFORMATION
  Report Type: Report from Study
  Country: CA (occurrence: CA)
  Receive Date: 20161208
  Receipt Date: 20170829
  Transmission Date: 20171127
  Serious: Yes (Hospitalization, Other)
  Sender: FDA-Public Use
  Company Number: CA-INCYTE CORPORATION-2016IN005520

PATIENT

DRUGS (12)
  1. JAKAVI [Suspect]
     Active Substance: RUXOLITINIB
     Indication: MYELOFIBROSIS
     Dosage: 20 MG, BID
     Route: 048
     Dates: start: 201608, end: 20161125
  2. IRON [Concomitant]
     Active Substance: IRON
     Dosage: 2 DF, QD
     Route: 065
  3. XARELTO [Concomitant]
     Active Substance: RIVAROXABAN
     Indication: PRODUCT USED FOR UNKNOWN INDICATION
     Dosage: UNK
     Route: 065
     Dates: end: 20161125
  4. IRON [Concomitant]
     Active Substance: IRON
     Dosage: 2 DF, QD
     Route: 065
  5. JAKAVI [Suspect]
     Active Substance: RUXOLITINIB
     Dosage: 20 MG, QD
     Route: 048
  6. JAKAVI [Suspect]
     Active Substance: RUXOLITINIB
     Dosage: 10 MG, BID
     Route: 048
  7. IRON [Concomitant]
     Active Substance: IRON
     Dosage: 2 DF, QD
     Route: 065
  8. IRON [Concomitant]
     Active Substance: IRON
     Indication: BLOOD IRON DECREASED
     Dosage: 2 DF, QD
     Route: 065
  9. JAKAVI [Suspect]
     Active Substance: RUXOLITINIB
     Dosage: 10 MG, BID
     Route: 048
  10. IRON [Concomitant]
     Active Substance: IRON
     Dosage: 2 DF, QD
     Route: 065
  11. IRON [Concomitant]
     Active Substance: IRON
     Dosage: 2 DF, QD
     Route: 065
  12. SYNTHROID [Concomitant]
     Active Substance: LEVOTHYROXINE SODIUM
     Indication: PRODUCT USED FOR UNKNOWN INDICATION
     Route: 065

REACTIONS (14)
  - Fatigue [Recovering/Resolving]
  - Weight decreased [Unknown]
  - Eating disorder [Unknown]
  - Asthenia [Unknown]
  - Haemarthrosis [Unknown]
  - Abscess [Unknown]
  - Sleep disorder [Unknown]
  - Mouth haemorrhage [Unknown]
  - Second primary malignancy [Unknown]
  - Blood iron decreased [Unknown]
  - Skin cancer [Unknown]
  - Decreased appetite [Recovering/Resolving]
  - Platelet disorder [Unknown]
  - Pain in extremity [Unknown]

NARRATIVE: CASE EVENT DATE: 20161125
